FAERS Safety Report 10209932 (Version 2)
Quarter: 2014Q2

REPORT INFORMATION
  Report Type: Spontaneous
  Country: US (occurrence: US)
  Receive Date: 20140602
  Receipt Date: 20140602
  Transmission Date: 20141212
  Serious: Yes (Other)
  Sender: FDA-Public Use
  Company Number: US-SA-2014SA029236

PATIENT
  Age: 54 Year
  Sex: Male
  Weight: 65.3 kg

DRUGS (6)
  1. FABRAZYME [Suspect]
     Indication: FABRY^S DISEASE
     Route: 042
     Dates: start: 20120424
  2. ACETAMINOPHEN [Concomitant]
     Indication: PREMEDICATION
     Dates: start: 20140218, end: 20140218
  3. DIPHENHYDRAMINE [Concomitant]
     Indication: PREMEDICATION
     Dates: start: 20140218, end: 20140218
  4. FAMOTIDINE [Concomitant]
     Indication: PREMEDICATION
     Dates: start: 20140218, end: 20140218
  5. HYDROCORTISONE [Concomitant]
     Indication: PREMEDICATION
     Dates: start: 20140218, end: 20140218
  6. MEPERIDINE [Concomitant]
     Dates: start: 20140218, end: 20140218

REACTIONS (2)
  - Cellulitis [Recovered/Resolved]
  - Thrombophlebitis [Recovered/Resolved]
